FAERS Safety Report 8067643-8 (Version None)
Quarter: 2012Q1

REPORT INFORMATION
  Report Type: 
  Country: None (occurrence: None)
  Receive Date: 20120124
  Receipt Date: 20120117
  Transmission Date: 20120608
  Serious: Yes (Hospitalization, Other)
  Sender: FDA-Public Use
  Company Number: US-NAPPMUNDI-USA-2011-0074568

PATIENT
  Sex: Female
  Weight: 99 kg

DRUGS (4)
  1. OXYCONTIN [Suspect]
     Indication: NECK PAIN
  2. OXYCONTIN [Suspect]
     Indication: MUSCULOSKELETAL PAIN
  3. OXYCONTIN [Suspect]
     Indication: BACK PAIN
     Dosage: 120 MG, Q8H
     Route: 048
  4. OXYCONTIN [Suspect]
     Indication: PAIN IN EXTREMITY

REACTIONS (11)
  - SEPSIS [None]
  - MOBILITY DECREASED [None]
  - PAIN [None]
  - DYSPNOEA [None]
  - HALLUCINATION [None]
  - MENTAL IMPAIRMENT [None]
  - GASTROINTESTINAL INFECTION [None]
  - ACTIVITIES OF DAILY LIVING IMPAIRED [None]
  - DRUG WITHDRAWAL SYNDROME [None]
  - PNEUMONIA [None]
  - PRURITUS [None]
